FAERS Safety Report 7940025-2 (Version None)
Quarter: 2011Q4

REPORT INFORMATION
  Report Type: 
  Country: None (occurrence: None)
  Receive Date: 20111125
  Receipt Date: 20111122
  Transmission Date: 20120403
  Serious: No
  Sender: FDA-Public Use
  Company Number: US-PFIZER INC-2011286155

PATIENT
  Sex: Female
  Weight: 72.56 kg

DRUGS (6)
  1. EFFEXOR XR [Suspect]
     Dosage: 50 MG, ALTERNATE DAY
     Route: 048
     Dates: start: 20110901, end: 20111101
  2. EFFEXOR XR [Suspect]
     Dosage: 50 MG, 1X/DAY
     Route: 048
     Dates: start: 20110801, end: 20110901
  3. EFFEXOR XR [Suspect]
     Dosage: 100 MG, 1X/DAY
     Route: 048
     Dates: start: 20110401, end: 20110801
  4. EFFEXOR XR [Suspect]
     Indication: DEPRESSION
     Dosage: 100 MG, 1X/DAY
     Route: 048
     Dates: start: 19970101
  5. DIOVAN [Concomitant]
     Dosage: UNK
  6. EFFEXOR XR [Suspect]
     Indication: ANXIETY
     Dosage: 150 MG, 1X/DAY
     Route: 048
     Dates: end: 20110401

REACTIONS (8)
  - DEPRESSION [None]
  - FEELING ABNORMAL [None]
  - ANXIETY [None]
  - DRUG INEFFECTIVE [None]
  - BLOOD PRESSURE INCREASED [None]
  - RASH [None]
  - DECREASED APPETITE [None]
  - BLOOD CHOLESTEROL DECREASED [None]
